FAERS Safety Report 5247343-X (Version None)
Quarter: 2007Q1

REPORT INFORMATION
  Report Type: 
  Country: None (occurrence: None)
  Receive Date: 20070227
  Receipt Date: 20070216
  Transmission Date: 20070707
  Serious: Yes (Hospitalization, Other)
  Sender: FDA-Public Use
  Company Number: GB-JNJFOC-20061200271

PATIENT
  Sex: Male
  Weight: 98 kg

DRUGS (11)
  1. REMICADE [Suspect]
     Indication: RHEUMATOID ARTHRITIS
     Route: 042
  2. SULFASALAZINE [Concomitant]
     Route: 065
  3. METHOTREXATE [Concomitant]
     Route: 065
  4. METHYLPREDNISOLONE ACETATE [Concomitant]
     Route: 065
  5. FOLIC ACID [Concomitant]
     Route: 065
  6. HYDROXYCHLOROQUINE SULFATE [Concomitant]
     Route: 065
  7. LANSOPRAZOLE [Concomitant]
     Route: 065
  8. PARACETAMOL [Concomitant]
     Route: 065
  9. REFECOXIB [Concomitant]
     Route: 065
  10. SODIUM BICARBONATE [Concomitant]
     Route: 065
  11. TRAMADOL HCL [Concomitant]
     Route: 065

REACTIONS (1)
  - PERIPHERAL ISCHAEMIA [None]
